FAERS Safety Report 9840993 (Version 1)
Quarter: 2013Q4

REPORT INFORMATION
  Report Type: Spontaneous
  Country: US (occurrence: None)
  Receive Date: 20131219
  Receipt Date: 20131219
  Transmission Date: 20140711
  Serious: Yes (Hospitalization)
  Sender: FDA-Public Use
  Company Number: 163-20785-12100400

PATIENT
  Age: 48 Year
  Sex: Female

DRUGS (1)
  1. THALOMID [Suspect]
     Indication: PRODUCT USED FOR UNKNOWN INDICATION
     Dosage: 100 MG,  1 IN 1 D, PO
     Route: 048
     Dates: start: 201207

REACTIONS (1)
  - Intestinal obstruction [None]
